FAERS Safety Report 9931982 (Version 1)
Quarter: 2014Q1

REPORT INFORMATION
  Report Type: Spontaneous
  Country: US (occurrence: US)
  Receive Date: 20140228
  Receipt Date: 20140228
  Transmission Date: 20141002
  Serious: No
  Sender: FDA-Public Use
  Company Number: US-ABBVIE-13P-163-1130838-00

PATIENT
  Age: 45 Year
  Sex: Male

DRUGS (1)
  1. ANDROGEL 1 % [Suspect]
     Indication: BLOOD TESTOSTERONE DECREASED
     Dosage: 50 MG GEL PACKS, TAKE TWO DAILY
     Route: 061

REACTIONS (1)
  - Blood testosterone abnormal [Not Recovered/Not Resolved]
